FAERS Safety Report 19666573 (Version 1)
Quarter: 2021Q3

REPORT INFORMATION
  Report Type: Spontaneous
  Country: CH (occurrence: CH)
  Receive Date: 20210806
  Receipt Date: 20210806
  Transmission Date: 20211014
  Serious: Yes (Life-Threatening, Hospitalization, Other)
  Sender: FDA-Public Use
  Company Number: CH-AMGEN-CHESP2021117761

PATIENT
  Age: 52 Year
  Sex: Male
  Weight: 83 kg

DRUGS (3)
  1. REPATHA [Suspect]
     Active Substance: EVOLOCUMAB
     Dosage: CYCLICAL
     Route: 058
     Dates: start: 201803, end: 201812
  2. REPATHA [Suspect]
     Active Substance: EVOLOCUMAB
     Indication: TYPE IIA HYPERLIPIDAEMIA
     Dosage: 140 MILLIGRAM, Q2WK
     Route: 058
     Dates: start: 201607, end: 201703
  3. REPATHA [Suspect]
     Active Substance: EVOLOCUMAB
     Dosage: EVERY THREE TO EVERY SIX WEEKS
     Route: 058
     Dates: start: 201812, end: 202006

REACTIONS (1)
  - Gastric cancer [Not Recovered/Not Resolved]

NARRATIVE: CASE EVENT DATE: 202102
